FAERS Safety Report 4768628-7 (Version None)
Quarter: 2005Q3

REPORT INFORMATION
  Report Type: 
  Country: None (occurrence: None)
  Receive Date: 20050914
  Receipt Date: 20050907
  Transmission Date: 20060218
  Serious: Yes (Death, Hospitalization)
  Sender: FDA-Public Use
  Company Number: US-JNJFOC-20050902078

PATIENT
  Age: 83 Year
  Sex: Female

DRUGS (6)
  1. ACETAMINOPHEN [Suspect]
  2. ACETAMINOPHEN [Suspect]
     Indication: SUICIDE ATTEMPT
  3. ASPIRIN [Suspect]
     Indication: SUICIDE ATTEMPT
  4. DILTIAZEM [Suspect]
     Indication: SUICIDE ATTEMPT
  5. CHLORDIAZEPOXIDE/CLIDINIUM [Suspect]
  6. CHLORDIAZEPOXIDE/CLIDINIUM [Suspect]
     Indication: SUICIDE ATTEMPT

REACTIONS (4)
  - BLOOD PH DECREASED [None]
  - COMPLETED SUICIDE [None]
  - HYPOTENSION [None]
  - INTENTIONAL MISUSE [None]
